FAERS Safety Report 17362743 (Version 1)
Quarter: 2020Q1

REPORT INFORMATION
  Report Type: Spontaneous
  Country: FR (occurrence: FR)
  Receive Date: 20200203
  Receipt Date: 20200203
  Transmission Date: 20200409
  Serious: Yes (Other)
  Sender: FDA-Public Use
  Company Number: FR-PFIZER INC-2020040699

PATIENT
  Age: 70 Year
  Sex: Female

DRUGS (2)
  1. PROGESTOGEL [Suspect]
     Active Substance: PROGESTERONE
     Indication: BREAST PAIN
     Dosage: 1 DF, ONCE A DAY
     Route: 003
     Dates: start: 1988, end: 1991
  2. ADEPAL [Suspect]
     Active Substance: ETHINYL ESTRADIOL\LEVONORGESTREL
     Indication: CONTRACEPTION
     Dosage: 1 DF, ONCE A DAY
     Route: 048
     Dates: start: 1988, end: 1991

REACTIONS (1)
  - Meningioma [Not Recovered/Not Resolved]

NARRATIVE: CASE EVENT DATE: 20191010
